FAERS Safety Report 5103553-3 (Version None)
Quarter: 2006Q3

REPORT INFORMATION
  Report Type: 
  Country: None (occurrence: None)
  Receive Date: 20060913
  Receipt Date: 20060904
  Transmission Date: 20061208
  Serious: Yes (Death)
  Sender: FDA-Public Use
  Company Number: JP-NOVOPROD-256781

PATIENT
  Age: 75 Year
  Sex: Male
  Weight: 37 kg

DRUGS (9)
  1. NOVOSEVEN [Suspect]
     Indication: HAEMORRHAGE
     Dosage: 4.8 MG, SINGLE
     Route: 042
     Dates: start: 20040422, end: 20040422
  2. NOVOSEVEN [Suspect]
     Dosage: 4.8 MG, SINGLE
     Route: 042
     Dates: start: 20040520, end: 20040520
  3. NOVOSEVEN [Suspect]
     Dosage: 4.8 MG, BID
     Route: 042
     Dates: start: 20040524, end: 20040524
  4. NOVOSEVEN [Suspect]
     Dosage: UNK, UNK
  5. MUCODYNE [Concomitant]
     Indication: PNEUMONIA
     Dosage: 1500 MG, QD
     Route: 048
     Dates: start: 20040422, end: 20040503
  6. FLOMOX [Concomitant]
     Indication: PNEUMONIA
     Dosage: 300 MG, QD
     Route: 048
     Dates: start: 20040422, end: 20040424
  7. FERRUM                             /00023502/ [Concomitant]
     Indication: ANAEMIA
     Dosage: 100 MG, QD
     Route: 048
     Dates: start: 20040426, end: 20040503
  8. MEROPEN                            /01250501/ [Concomitant]
     Indication: PNEUMONIA
     Dosage: 1 G, QD
     Route: 042
     Dates: start: 20040501, end: 20040531
  9. TRANSAMIN [Concomitant]
     Dosage: 1500 MG, QD
     Route: 048
     Dates: start: 20040502, end: 20040503

REACTIONS (3)
  - HEPATIC FUNCTION ABNORMAL [None]
  - LIVER DISORDER [None]
  - RENAL FAILURE [None]
